FAERS Safety Report 12666315 (Version 1)
Quarter: 2016Q3

REPORT INFORMATION
  Report Type: Spontaneous
  Country: US (occurrence: US)
  Receive Date: 20160818
  Receipt Date: 20160818
  Transmission Date: 20161109
  Serious: No
  Sender: FDA-Public Use
  Company Number: US-JAZZ-2016-US-005744

PATIENT
  Sex: Female

DRUGS (40)
  1. SKELAXIN [Suspect]
     Active Substance: METAXALONE
     Indication: PRODUCT USED FOR UNKNOWN INDICATION
     Dosage: UNK
     Dates: start: 20150930
  2. VITAMIN D2 [Concomitant]
     Active Substance: ERGOCALCIFEROL
  3. SYNTHROID [Concomitant]
     Active Substance: LEVOTHYROXINE SODIUM
  4. ARMOUR THYROID [Concomitant]
     Active Substance: THYROID, PORCINE
  5. XYREM [Suspect]
     Active Substance: SODIUM OXYBATE
     Dosage: 2.5 G, BID
     Route: 048
     Dates: start: 201508, end: 201510
  6. VITAMIN C [Concomitant]
     Active Substance: ASCORBIC ACID
  7. CYCLOBENZAPRINE [Concomitant]
     Active Substance: CYCLOBENZAPRINE
  8. LUNESTA [Concomitant]
     Active Substance: ESZOPICLONE
  9. REMERON [Concomitant]
     Active Substance: MIRTAZAPINE
  10. GABAPENTIN. [Suspect]
     Active Substance: GABAPENTIN
     Indication: PRODUCT USED FOR UNKNOWN INDICATION
  11. BIOTIN [Concomitant]
     Active Substance: BIOTIN
  12. ECHINACEA [Concomitant]
     Active Substance: ECHINACEA, UNSPECIFIED
  13. TESSALON [Concomitant]
     Active Substance: BENZONATATE
  14. ALEVE [Concomitant]
     Active Substance: NAPROXEN SODIUM
  15. FISH OIL [Concomitant]
     Active Substance: FISH OIL
  16. DIPHENHYDRAMINE HCL [Concomitant]
     Active Substance: DIPHENHYDRAMINE HYDROCHLORIDE
  17. LIOTHYRONINE SODIUM. [Concomitant]
     Active Substance: LIOTHYRONINE SODIUM
  18. OMEPRAZOLE. [Concomitant]
     Active Substance: OMEPRAZOLE
  19. TOPIRAMATE. [Concomitant]
     Active Substance: TOPIRAMATE
  20. EXCEDRIN MIGRAINE [Concomitant]
     Active Substance: ACETAMINOPHEN\ASPIRIN\CAFFEINE
  21. IMMUNOCAL [Concomitant]
  22. TESTOSTERONE. [Concomitant]
     Active Substance: TESTOSTERONE
  23. VITAMIN B12 [Concomitant]
     Active Substance: CYANOCOBALAMIN
  24. TEMAZEPAM. [Concomitant]
     Active Substance: TEMAZEPAM
  25. PROGESTERONE. [Concomitant]
     Active Substance: PROGESTERONE
  26. AMOXICILLIN. [Concomitant]
     Active Substance: AMOXICILLIN
  27. MULTIVITAMINS [Concomitant]
     Active Substance: VITAMINS
  28. METAXALONE. [Concomitant]
     Active Substance: METAXALONE
  29. XOPENEX HFA [Concomitant]
     Active Substance: LEVALBUTEROL TARTRATE
  30. TOBRAMYCIN. [Concomitant]
     Active Substance: TOBRAMYCIN
  31. NUVIGIL [Concomitant]
     Active Substance: ARMODAFINIL
  32. ZETONNA [Concomitant]
     Active Substance: CICLESONIDE
  33. ZYRTEC [Concomitant]
     Active Substance: CETIRIZINE HYDROCHLORIDE
  34. XYREM [Suspect]
     Active Substance: SODIUM OXYBATE
     Indication: SOMNOLENCE
     Dosage: 1.5 G, BID
     Route: 048
     Dates: start: 201506, end: 201508
  35. XYREM [Suspect]
     Active Substance: SODIUM OXYBATE
     Dosage: 4 G, BID
     Route: 048
     Dates: start: 201510
  36. CYTOMEL [Concomitant]
     Active Substance: LIOTHYRONINE SODIUM
  37. GARLIC. [Concomitant]
     Active Substance: GARLIC
  38. KLOR-CON [Concomitant]
     Active Substance: POTASSIUM CHLORIDE
  39. IMMUNE BOOST [Concomitant]
     Active Substance: DIETARY SUPPLEMENT
  40. PROBIOTIC [Concomitant]
     Active Substance: PROBIOTICS NOS

REACTIONS (5)
  - Wrong technique in product usage process [Unknown]
  - Fibromyalgia [Recovering/Resolving]
  - Hypersomnia [Unknown]
  - Vitamin D decreased [Unknown]
  - Drug ineffective [Unknown]
